FAERS Safety Report 20705678 (Version 4)
Quarter: 2022Q2

REPORT INFORMATION
  Report Type: Spontaneous
  Country: US (occurrence: US)
  Receive Date: 20220413
  Receipt Date: 20220522
  Transmission Date: 20220721
  Serious: Yes (Other)
  Sender: FDA-Public Use
  Company Number: US-JNJFOC-20220405855

PATIENT
  Age: 59 Year
  Sex: Female

DRUGS (2)
  1. TREMFYA [Suspect]
     Active Substance: GUSELKUMAB
     Indication: Psoriatic arthropathy
     Route: 058
     Dates: start: 20220117
  2. INSULIN NOS [Concomitant]
     Active Substance: INSULIN NOS

REACTIONS (8)
  - Cellulitis [Unknown]
  - Psoriatic arthropathy [Unknown]
  - Injection site pain [Not Recovered/Not Resolved]
  - Device malfunction [Unknown]
  - COVID-19 [Not Recovered/Not Resolved]
  - Off label use [Unknown]
  - Inappropriate schedule of product administration [Unknown]
  - Product dose omission issue [Unknown]

NARRATIVE: CASE EVENT DATE: 20220405
